FAERS Safety Report 8822211 (Version 2)
Quarter: 2012Q4

REPORT INFORMATION
  Report Type: 
  Country: US (occurrence: US)
  Receive Date: 20121003
  Receipt Date: 20121018
  Transmission Date: 20130627
  Serious: No
  Sender: FDA-Public Use
  Company Number: US-PFIZER INC-2012239975

PATIENT
  Age: 85 Year
  Sex: Male
  Weight: 83.9 kg

DRUGS (4)
  1. TOVIAZ [Suspect]
     Indication: NOCTURIA
     Dosage: UNK, daily
     Dates: start: 2011
  2. TOVIAZ [Suspect]
     Dosage: 4 mg, UNK
  3. TOVIAZ [Suspect]
     Dosage: 8 mg, daily
     Dates: start: 201208
  4. TOVIAZ [Suspect]
     Dosage: 4 mg, UNK

REACTIONS (2)
  - Drug ineffective [Unknown]
  - Product quality issue [Unknown]
